FAERS Safety Report 20421304 (Version 1)
Quarter: 2022Q1

REPORT INFORMATION
  Report Type: Spontaneous
  Country: US (occurrence: None)
  Receive Date: 20220203
  Receipt Date: 20220203
  Transmission Date: 20220423
  Serious: No
  Sender: FDA-Public Use
  Company Number: None

PATIENT
  Age: 67 Year
  Sex: Male

DRUGS (1)
  1. BUPRENORPHINE [Suspect]
     Active Substance: BUPRENORPHINE
     Dosage: OTHER STRENGTH : 15MCG/HR;?
     Dates: start: 20211206, end: 20220131

REACTIONS (4)
  - Skin irritation [None]
  - Rash [None]
  - Erythema [None]
  - Application site reaction [None]

NARRATIVE: CASE EVENT DATE: 20220131
